FAERS Safety Report 12433190 (Version 1)
Quarter: 2016Q2

REPORT INFORMATION
  Report Type: Spontaneous
  Country: CO (occurrence: CO)
  Receive Date: 20160603
  Receipt Date: 20160603
  Transmission Date: 20160815
  Serious: Yes (Hospitalization)
  Sender: FDA-Public Use
  Company Number: CO-NOVOPROD-487477

PATIENT
  Age: 31 Year
  Sex: Male
  Weight: 76 kg

DRUGS (5)
  1. NOVOSEVEN RT [Suspect]
     Active Substance: COAGULATION FACTOR VIIA RECOMBINANT HUMAN
     Indication: HAEMATOMA
     Dosage: 21 MG
     Route: 042
     Dates: start: 20160306
  2. NOVOSEVEN RT [Suspect]
     Active Substance: COAGULATION FACTOR VIIA RECOMBINANT HUMAN
     Dosage: 21 MG AT 10:00 PM
     Route: 042
     Dates: start: 20160308
  3. NOVOSEVEN RT [Suspect]
     Active Substance: COAGULATION FACTOR VIIA RECOMBINANT HUMAN
     Indication: HAEMOPHILIA B WITH ANTI FACTOR IX
     Dosage: UNK
     Route: 042
     Dates: start: 20160305
  4. NOVOSEVEN RT [Suspect]
     Active Substance: COAGULATION FACTOR VIIA RECOMBINANT HUMAN
     Indication: HAEMORRHAGE
     Dosage: NOVOSEVEN EVERY 12 HOURS
     Route: 042
     Dates: start: 20160307
  5. NOVOSEVEN RT [Suspect]
     Active Substance: COAGULATION FACTOR VIIA RECOMBINANT HUMAN
     Dosage: 7 MG DOSE, 2 DOSES EVERY 3 HOURS
     Route: 042
     Dates: start: 20160309

REACTIONS (2)
  - Haemarthrosis [Unknown]
  - Haematoma [Recovered/Resolved]

NARRATIVE: CASE EVENT DATE: 20160309
